FAERS Safety Report 10677688 (Version 2)
Quarter: 2015Q1

REPORT INFORMATION
  Report Type: Report from Study
  Country: US (occurrence: US)
  Receive Date: 20141229
  Receipt Date: 20150120
  Transmission Date: 20150720
  Serious: Yes (Death)
  Sender: FDA-Public Use
  Company Number: US-AMGEN-USASL2014101038

PATIENT
  Age: 97 Year
  Sex: Female
  Weight: 48.53 kg

DRUGS (1)
  1. PROLIA [Suspect]
     Active Substance: DENOSUMAB
     Indication: OSTEOPOROSIS
     Dosage: UNK
     Route: 058
     Dates: start: 20140220

REACTIONS (1)
  - Death [Fatal]

NARRATIVE: CASE EVENT DATE: 20140920
